FAERS Safety Report 22608408 (Version 1)
Quarter: 2023Q2

REPORT INFORMATION
  Report Type: Report from Study
  Country: CA (occurrence: CA)
  Receive Date: 20230616
  Receipt Date: 20230616
  Transmission Date: 20230722
  Serious: Yes (Other)
  Sender: FDA-Public Use
  Company Number: CA-CELLTRION INC.-2023CA012301

PATIENT

DRUGS (1)
  1. TRUXIMA [Suspect]
     Active Substance: RITUXIMAB-ABBS
     Indication: Nodular lymphocyte predominant Hodgkin lymphoma
     Dosage: 791.25 MG, 6 X 500 MG VIALS, 18 + 100 MG VIALS = 4800 MG (375 MG/M2 Q3W X 6 CYCLES)

REACTIONS (2)
  - Nodular lymphocyte predominant Hodgkin lymphoma [Unknown]
  - Off label use [Unknown]
